FAERS Safety Report 16978916 (Version 3)
Quarter: 2021Q4

REPORT INFORMATION
  Report Type: Spontaneous
  Country: US (occurrence: US)
  Receive Date: 20191031
  Receipt Date: 20211115
  Transmission Date: 20220303
  Serious: No
  Sender: FDA-Public Use
  Company Number: US-PFIZER INC-2019465510

PATIENT
  Age: 49 Year
  Sex: Male

DRUGS (1)
  1. LYRICA [Suspect]
     Active Substance: PREGABALIN
     Indication: Cauda equina syndrome
     Dosage: 200 MG, 3X/DAY(1 CAPSULE THREE TIMES DAILY 90 DAYS)
     Route: 048

REACTIONS (1)
  - Neuralgia [Unknown]
